FAERS Safety Report 23562211 (Version 1)
Quarter: 2024Q1

REPORT INFORMATION
  Report Type: Spontaneous
  Country: FR (occurrence: FR)
  Receive Date: 20240226
  Receipt Date: 20240226
  Transmission Date: 20240409
  Serious: Yes (Other)
  Sender: FDA-Public Use
  Company Number: None

PATIENT
  Age: 71 Year
  Sex: Male
  Weight: 104 kg

DRUGS (9)
  1. HYDROXYUREA [Suspect]
     Active Substance: HYDROXYUREA
     Indication: Polycythaemia vera
     Dosage: 2 AND 3 GEL/D ALTERNATING
     Dates: start: 20170701
  2. Pfizer [Concomitant]
     Dosage: D2
     Dates: start: 20210414
  3. Pfizer [Concomitant]
     Dates: start: 202110
  4. Pfizer [Concomitant]
     Dates: start: 20220518
  5. ASPIRIN DL-LYSINE [Concomitant]
     Active Substance: ASPIRIN DL-LYSINE
     Dosage: DAILY DOSE: 300 MILLIGRAM
     Dates: start: 20170314
  6. ASPIRIN DL-LYSINE [Concomitant]
     Active Substance: ASPIRIN DL-LYSINE
     Dosage: DAILY DOSE: 100 MILLIGRAM
  7. AMLODIPINE BESYLATE [Concomitant]
     Active Substance: AMLODIPINE BESYLATE
     Dosage: IN THE MORNING?DAILY DOSE: 5 MILLIGRAM
  8. IRBESARTAN [Concomitant]
     Active Substance: IRBESARTAN
     Dosage: IN THE MORNING?DAILY DOSE: 300 MILLIGRAM
  9. FUROSEMIDE [Concomitant]
     Active Substance: FUROSEMIDE
     Dosage: IN THE MORNING?DAILY DOSE: 10 MILLIGRAM

REACTIONS (2)
  - Squamous cell carcinoma of skin [Recovered/Resolved with Sequelae]
  - Basal cell carcinoma [Recovered/Resolved with Sequelae]

NARRATIVE: CASE EVENT DATE: 20230919
